FAERS Safety Report 5508621-X (Version None)
Quarter: 2007Q4

REPORT INFORMATION
  Report Type: 
  Country: None (occurrence: None)
  Receive Date: 20071107
  Receipt Date: 20071029
  Transmission Date: 20080405
  Serious: Yes (Hospitalization)
  Sender: FDA-Public Use
  Company Number: FR-BRISTOL-MYERS SQUIBB COMPANY-13874300

PATIENT
  Age: 62 Year
  Sex: Male

DRUGS (11)
  1. GLUCOPHAGE [Suspect]
     Indication: TYPE 2 DIABETES MELLITUS
     Route: 048
     Dates: start: 20050401
  2. ALDACTONE [Suspect]
     Route: 048
     Dates: start: 20060501
  3. LASIX [Concomitant]
     Indication: MYOCARDIAL INFARCTION
     Route: 048
     Dates: start: 20050701
  4. AMARYL [Concomitant]
     Route: 048
     Dates: start: 20050401
  5. PERINDOPRIL ERBUMINE [Concomitant]
     Route: 048
     Dates: start: 20050401, end: 20070301
  6. CARDENSIEL [Concomitant]
     Indication: MYOCARDIAL INFARCTION
     Route: 048
     Dates: start: 20050701
  7. LEVOTHYROXINE SODIUM [Concomitant]
     Indication: HYPOTHYROIDISM
     Route: 048
     Dates: start: 20050401
  8. PANTOPRAZOLE SODIUM [Concomitant]
     Route: 048
     Dates: start: 20061101, end: 20070401
  9. ATORVASTATIN CALCIUM [Concomitant]
     Dates: start: 20050701, end: 20070401
  10. CORDARONE [Concomitant]
     Dates: start: 20050401, end: 20061201
  11. PLAVIX [Concomitant]
     Dates: start: 20050701, end: 20061201

REACTIONS (3)
  - PRURITUS [None]
  - RASH PAPULAR [None]
  - RASH PUSTULAR [None]
